FAERS Safety Report 10072316 (Version 1)
Quarter: 2014Q2

REPORT INFORMATION
  Report Type: Spontaneous
  Country: FR (occurrence: FR)
  Receive Date: 20140411
  Receipt Date: 20140411
  Transmission Date: 20141212
  Serious: Yes (Hospitalization)
  Sender: FDA-Public Use
  Company Number: FR-MYLANLABS-2014S1007695

PATIENT
  Age: 8 Year
  Sex: Male

DRUGS (4)
  1. MYCOPHENOLATE MOFETIL [Suspect]
     Indication: IMMUNOSUPPRESSANT DRUG THERAPY
     Route: 065
  2. TACROLIMUS [Interacting]
     Indication: IMMUNOSUPPRESSANT DRUG THERAPY
     Dosage: 0.16 MG/KG/DAY
     Route: 065
  3. FUMAGILLIN [Interacting]
     Indication: MICROSPORIDIA INFECTION
     Route: 065
  4. FUMAGILLIN [Interacting]
     Indication: MICROSPORIDIA INFECTION
     Route: 065

REACTIONS (7)
  - Microsporidia infection [Recovered/Resolved]
  - Thrombocytopenia [Recovered/Resolved]
  - Neutropenia [Recovered/Resolved]
  - Drug level decreased [Unknown]
  - Drug interaction [Unknown]
  - Trichophytosis [Recovered/Resolved]
  - Alopecia areata [Unknown]
